FAERS Safety Report 10305532 (Version 1)
Quarter: 2014Q3

REPORT INFORMATION
  Report Type: Spontaneous
  Country: FI (occurrence: FI)
  Receive Date: 20140715
  Receipt Date: 20140715
  Transmission Date: 20150326
  Serious: Yes (Other)
  Sender: FDA-Public Use
  Company Number: PHHY2014FI085789

PATIENT

DRUGS (2)
  1. CICLOSPORIN [Suspect]
     Active Substance: CYCLOSPORINE
     Indication: PROPHYLAXIS AGAINST GRAFT VERSUS HOST DISEASE
  2. METHOTREXATE [Suspect]
     Active Substance: METHOTREXATE
     Indication: PROPHYLAXIS AGAINST GRAFT VERSUS HOST DISEASE

REACTIONS (5)
  - Chronic graft versus host disease in intestine [Unknown]
  - Acute graft versus host disease [Unknown]
  - Chronic graft versus host disease [Unknown]
  - Chronic graft versus host disease in skin [Unknown]
  - Interstitial lung disease [Unknown]
